FAERS Safety Report 22228521 (Version 1)
Quarter: 2023Q2

REPORT INFORMATION
  Report Type: Spontaneous
  Country: US (occurrence: None)
  Receive Date: 20230417
  Receipt Date: 20230417
  Transmission Date: 20230721
  Serious: Yes (Hospitalization)
  Sender: FDA-Public Use
  Company Number: None

PATIENT
  Age: 72 Year
  Sex: Female
  Weight: 64.3 kg

DRUGS (1)
  1. ZARXIO [Suspect]
     Active Substance: FILGRASTIM-SNDZ
     Dosage: FREQUENCY : DAILY;?
     Route: 030
     Dates: start: 20230401, end: 20230403

REACTIONS (5)
  - Pyrexia [None]
  - Rash maculo-papular [None]
  - Asthenia [None]
  - Injection related reaction [None]
  - Product substitution issue [None]

NARRATIVE: CASE EVENT DATE: 20230408
